FAERS Safety Report 14924337 (Version 2)
Quarter: 2018Q2

REPORT INFORMATION
  Report Type: Not Available
  Country: US (occurrence: US)
  Receive Date: 20180522
  Receipt Date: 20180522
  Transmission Date: 20180711
  Serious: No
  Sender: FDA-Public Use
  Company Number: US-NEUROCRINE BIOSCIENCES INC.-2018NBI01223

PATIENT
  Sex: Female
  Weight: 65.83 kg

DRUGS (4)
  1. INGREZZA [Suspect]
     Active Substance: VALBENAZINE
     Indication: TREMOR
     Route: 048
     Dates: start: 2018
  2. INGREZZA [Suspect]
     Active Substance: VALBENAZINE
     Indication: BRUXISM
     Route: 048
     Dates: start: 201801, end: 2018
  3. GEODON [Concomitant]
     Active Substance: ZIPRASIDONE HYDROCHLORIDE\ZIPRASIDONE MESYLATE
     Indication: PRODUCT USED FOR UNKNOWN INDICATION
  4. INGREZZA [Suspect]
     Active Substance: VALBENAZINE
     Indication: MUSCLE TWITCHING

REACTIONS (2)
  - Diarrhoea [Not Recovered/Not Resolved]
  - Constipation [Recovered/Resolved]

NARRATIVE: CASE EVENT DATE: 2018
